FAERS Safety Report 20175735 (Version 2)
Quarter: 2022Q1

REPORT INFORMATION
  Report Type: Spontaneous
  Country: PT (occurrence: PT)
  Receive Date: 20211213
  Receipt Date: 20220104
  Transmission Date: 20220424
  Serious: Yes (Life-Threatening, Other)
  Sender: FDA-Public Use
  Company Number: PT-MYLANLABS-2021M1090911

PATIENT
  Age: 32 Year
  Sex: Female

DRUGS (4)
  1. RISPERIDONE [Suspect]
     Active Substance: RISPERIDONE
     Indication: Psychiatric decompensation
     Dosage: TITRATED FROM 3MG ID TO 6MG BID
  2. RISPERIDONE [Suspect]
     Active Substance: RISPERIDONE
     Dosage: 3 MILLIGRAM
     Route: 065
  3. RISPERIDONE [Suspect]
     Active Substance: RISPERIDONE
     Dosage: 12 MILLIGRAM, QD (6 MILLIGRAM, TWO TIMES A DAY)
     Route: 065
  4. RISPERIDONE [Suspect]
     Active Substance: RISPERIDONE
     Dosage: UNK, QD

REACTIONS (3)
  - Suicide attempt [Recovered/Resolved]
  - Akathisia [Recovered/Resolved]
  - Off label use [Unknown]
